FAERS Safety Report 5255085-X (Version None)
Quarter: 2007Q1

REPORT INFORMATION
  Report Type: 
  Country: None (occurrence: None)
  Receive Date: 20070305
  Receipt Date: 20070222
  Transmission Date: 20070707
  Serious: Yes (Hospitalization)
  Sender: FDA-Public Use
  Company Number: FR-JNJFOC-20070205596

PATIENT
  Age: 37 Year
  Sex: Male
  Weight: 65 kg

DRUGS (11)
  1. HALDOL [Suspect]
     Indication: PSYCHOTIC DISORDER
     Route: 065
  2. LEPTICUR [Suspect]
     Indication: PSYCHOTIC DISORDER
     Route: 065
  3. TERCIAN [Suspect]
     Indication: PSYCHOTIC DISORDER
     Route: 065
  4. TARDYFERON [Suspect]
     Indication: IRON DEFICIENCY ANAEMIA
     Route: 048
  5. RIVOTRIL [Concomitant]
     Indication: EPILEPSY
     Route: 065
  6. XANAX [Concomitant]
     Indication: PSYCHOTIC DISORDER
     Route: 065
  7. VALIUM [Concomitant]
     Route: 065
  8. DIHYDROERGOTAMINE MESYLATE [Concomitant]
     Route: 065
  9. SULFARLEM [Concomitant]
     Route: 048
  10. MOVICOL [Concomitant]
     Dosage: 6 SACHETS PER WEEK
     Route: 065
  11. LIQUID PARAFFIN [Concomitant]
     Route: 065

REACTIONS (2)
  - CONSTIPATION [None]
  - INTESTINAL OBSTRUCTION [None]
